FAERS Safety Report 6800805-3 (Version None)
Quarter: 2010Q2

REPORT INFORMATION
  Report Type: 
  Country: None (occurrence: None)
  Receive Date: 20100629
  Receipt Date: 20100622
  Transmission Date: 20101027
  Serious: Yes (Life-Threatening, Hospitalization, Disabling)
  Sender: FDA-Public Use
  Company Number: PL-SANOFI-AVENTIS-2010SA036072

PATIENT
  Age: 60 Year
  Sex: Male
  Weight: 59 kg

DRUGS (1)
  1. ARAVA [Suspect]
     Indication: RHEUMATOID ARTHRITIS
     Route: 048
     Dates: start: 20091101, end: 20100201

REACTIONS (2)
  - PULMONARY ARTERIAL HYPERTENSION [None]
  - PULMONARY FIBROSIS [None]
